FAERS Safety Report 10012526 (Version 2)
Quarter: 2014Q1

REPORT INFORMATION
  Report Type: Spontaneous
  Country: CA (occurrence: CA)
  Receive Date: 20140314
  Receipt Date: 20140314
  Transmission Date: 20141002
  Serious: Yes (Hospitalization, Other)
  Sender: FDA-Public Use
  Company Number: CA-VERTEX PHARMACEUTICALS INC-2014-000886

PATIENT
  Age: 60 Year
  Sex: Female

DRUGS (19)
  1. INCIVEK [Suspect]
     Indication: CHRONIC HEPATITIS C
     Dosage: 750 MG, TID
     Route: 048
     Dates: start: 20131016
  2. PEGASYS [Suspect]
     Indication: CHRONIC HEPATITIS C
     Dosage: 180 ?G, QW
     Route: 058
     Dates: start: 20131016
  3. PEGASYS [Suspect]
     Dosage: UNK
     Dates: end: 20140219
  4. COPEGUS [Suspect]
     Indication: CHRONIC HEPATITIS C
     Dosage: 1000 MG, QD
     Route: 048
     Dates: start: 20131016
  5. COPEGUS [Suspect]
     Dosage: UNK
  6. PROBIOTIC [Concomitant]
  7. ACIDOPHILUS [Concomitant]
  8. MULTIVITAMINS [Concomitant]
  9. GLUCOSAMINE [Concomitant]
  10. ALPRAZOLAM [Concomitant]
     Dosage: UNK, PRN
  11. OMEGA 3 [Concomitant]
  12. CALCIUM [Concomitant]
  13. RANITIDINE [Concomitant]
  14. PRAVASTATIN [Concomitant]
  15. RABEPRAZOLE [Concomitant]
  16. CELEXA [Concomitant]
  17. BOTOX [Concomitant]
  18. JUVEDERM [Concomitant]
     Indication: SKIN WRINKLING
  19. COQ10 [Concomitant]

REACTIONS (4)
  - Pneumonia [Unknown]
  - Haemoglobin decreased [Unknown]
  - Malaise [Unknown]
  - Hypothyroidism [Unknown]
